FAERS Safety Report 10459518 (Version 2)
Quarter: 2014Q3

REPORT INFORMATION
  Report Type: Spontaneous
  Country: JP (occurrence: JP)
  Receive Date: 20140917
  Receipt Date: 20140923
  Transmission Date: 20150326
  Serious: Yes (Hospitalization)
  Sender: FDA-Public Use
  Company Number: CHPA2014JP012110

PATIENT

DRUGS (1)
  1. SENNOSIDE UNKNOWN MANUFACTURER [Suspect]
     Active Substance: SENNOSIDES
     Dosage: UNK
     Route: 048

REACTIONS (4)
  - Nausea [Unknown]
  - Dysphagia [Unknown]
  - Vomiting [Unknown]
  - Diarrhoea [Unknown]
